FAERS Safety Report 12006592 (Version 1)
Quarter: 2016Q1

REPORT INFORMATION
  Report Type: Report from Study
  Country: US (occurrence: US)
  Receive Date: 20160205
  Receipt Date: 20160205
  Transmission Date: 20160526
  Serious: No
  Sender: FDA-Public Use
  Company Number: US-ABBVIE-15K-163-1439924-00

PATIENT
  Sex: Female
  Weight: 79.45 kg

DRUGS (8)
  1. MULTIVITAMINS [Concomitant]
     Active Substance: VITAMINS
     Indication: VITAMIN SUPPLEMENTATION
  2. CALCIUM [Concomitant]
     Active Substance: CALCIUM
     Indication: MINERAL SUPPLEMENTATION
  3. ACEBUTOLOL [Concomitant]
     Active Substance: ACEBUTOLOL
     Indication: HYPERTENSION
  4. HUMIRA [Suspect]
     Active Substance: ADALIMUMAB
     Indication: PSORIASIS
     Route: 058
     Dates: start: 201502
  5. LOSARTAN / HIDROCLOROTIAZIDA [Concomitant]
     Active Substance: HYDROCHLOROTHIAZIDE\LOSARTAN
     Indication: HYPERTENSION
  6. OMEPRAZOLE. [Concomitant]
     Active Substance: OMEPRAZOLE
     Indication: GASTROOESOPHAGEAL REFLUX DISEASE
  7. ERGOCALCIFEROL. [Concomitant]
     Active Substance: ERGOCALCIFEROL
     Indication: VITAMIN SUPPLEMENTATION
  8. FISH OIL [Concomitant]
     Active Substance: FISH OIL
     Indication: NUTRITIONAL SUPPLEMENTATION

REACTIONS (2)
  - Skin papilloma [Not Recovered/Not Resolved]
  - Viral infection [Not Recovered/Not Resolved]

NARRATIVE: CASE EVENT DATE: 2015
